FAERS Safety Report 5620242-7 (Version None)
Quarter: 2008Q1

REPORT INFORMATION
  Report Type: 
  Country: None (occurrence: None)
  Receive Date: 20080208
  Receipt Date: 20080205
  Transmission Date: 20080703
  Serious: Yes (Other)
  Sender: FDA-Public Use
  Company Number: B0487625A

PATIENT
  Age: 14 Year
  Sex: Male

DRUGS (4)
  1. PAXIL [Suspect]
     Indication: ANXIETY DISORDER
     Dosage: 10MG PER DAY
     Route: 048
     Dates: start: 20061004, end: 20061101
  2. GASMOTIN [Concomitant]
     Route: 048
     Dates: start: 20061004, end: 20061101
  3. DOGMATYL [Concomitant]
     Route: 048
     Dates: start: 20061012, end: 20061108
  4. RISPERDAL [Concomitant]
     Route: 048
     Dates: start: 20061109, end: 20061101

REACTIONS (2)
  - AGGRESSION [None]
  - SUICIDAL IDEATION [None]
